FAERS Safety Report 9510969 (Version 1)
Quarter: 2013Q3

REPORT INFORMATION
  Report Type: Spontaneous
  Country: US (occurrence: US)
  Receive Date: 20130910
  Receipt Date: 20130910
  Transmission Date: 20140515
  Serious: No
  Sender: FDA-Public Use
  Company Number: US-B.I. PHARMACEUTICALS,INC./RIDGEFIELD-2013-BI-26902BP

PATIENT
  Age: 77 Year
  Sex: Female
  Weight: 91 kg

DRUGS (5)
  1. PRADAXA [Suspect]
     Indication: CEREBROVASCULAR ACCIDENT PROPHYLAXIS
     Dosage: 300 MG
     Route: 048
     Dates: start: 20130719
  2. PRADAXA [Suspect]
     Indication: ATRIAL FIBRILLATION
  3. FISH OIL [Concomitant]
     Route: 048
  4. VITAMIN D [Concomitant]
     Route: 048
  5. VITAMIN B [Concomitant]
     Route: 048

REACTIONS (6)
  - Vasodilatation [Not Recovered/Not Resolved]
  - Arthralgia [Not Recovered/Not Resolved]
  - Joint swelling [Not Recovered/Not Resolved]
  - Diarrhoea [Not Recovered/Not Resolved]
  - Decreased appetite [Not Recovered/Not Resolved]
  - Abnormal loss of weight [Not Recovered/Not Resolved]
